FAERS Safety Report 21056775 (Version 5)
Quarter: 2022Q3

REPORT INFORMATION
  Report Type: Spontaneous
  Country: CA (occurrence: CA)
  Receive Date: 20220708
  Receipt Date: 20220824
  Transmission Date: 20221026
  Serious: Yes (Death, Other)
  Sender: FDA-Public Use
  Company Number: CA-BEH-2022147304

PATIENT
  Age: 21 Year
  Sex: Female
  Weight: 40.3 kg

DRUGS (9)
  1. PRIVIGEN [Suspect]
     Active Substance: HUMAN IMMUNOGLOBULIN G
     Indication: Heart transplant rejection
     Dosage: 3/4 = 160ML, TOT
     Route: 042
     Dates: start: 20220702, end: 20220702
  2. ALBUREX [Suspect]
     Active Substance: ALBUMIN HUMAN
     Indication: Plasmapheresis
     Dosage: 4/4; 250 ML
     Route: 042
     Dates: start: 20220702, end: 20220702
  3. ALBUREX [Suspect]
     Active Substance: ALBUMIN HUMAN
     Dosage: 4/4; 500 ML
     Route: 042
     Dates: start: 20220702, end: 20220702
  4. ALBUREX [Suspect]
     Active Substance: ALBUMIN HUMAN
     Dosage: 4/4; 500 ML
     Route: 042
     Dates: start: 20220702, end: 20220702
  5. ALBUREX [Suspect]
     Active Substance: ALBUMIN HUMAN
     Dosage: 4/4; 500 ML
     Route: 042
     Dates: start: 20220702, end: 20220702
  6. HEPARIN [Concomitant]
     Active Substance: HEPARIN SODIUM
     Dosage: 10 ML/H
     Route: 042
     Dates: start: 20220702
  7. VALPREX [Concomitant]
     Dosage: 500 MILLIGRAM
     Route: 048
     Dates: start: 20220702
  8. MEPRON [Concomitant]
     Active Substance: ATOVAQUONE
     Dosage: 1500 MILLIGRAM
     Route: 048
     Dates: start: 20220702
  9. PREDNISONE [Concomitant]
     Active Substance: PREDNISONE
     Dosage: 5 MILLIGRAM
     Route: 048
     Dates: start: 20220702

REACTIONS (10)
  - Transfusion-associated dyspnoea [Recovered/Resolved]
  - Chills [Recovered/Resolved]
  - Nausea [Recovered/Resolved]
  - Wheezing [Recovered/Resolved]
  - Dyspnoea [Recovered/Resolved]
  - Tachypnoea [Recovered/Resolved]
  - No adverse event [Unknown]
  - Off label use [Unknown]
  - Ventricular arrhythmia [Fatal]
  - Acute pulmonary oedema [Fatal]

NARRATIVE: CASE EVENT DATE: 20220702
